FAERS Safety Report 11841629 (Version 1)
Quarter: 2015Q4

REPORT INFORMATION
  Report Type: Spontaneous
  Country: US (occurrence: US)
  Receive Date: 20151216
  Receipt Date: 20151216
  Transmission Date: 20160305
  Serious: No
  Sender: FDA-Public Use
  Company Number: US-RB-069904-14

PATIENT
  Sex: Female

DRUGS (1)
  1. DELSYM [Suspect]
     Active Substance: DEXTROMETHORPHAN
     Indication: PRODUCT USED FOR UNKNOWN INDICATION
     Dosage: 10ML. CONSUMED MOST OF THE BOTTLE;LAST USED THE PRODUCT ON 17-OCT-2014,BID
     Route: 065
     Dates: start: 20141014

REACTIONS (1)
  - Drug ineffective [Not Recovered/Not Resolved]
